FAERS Safety Report 5903842-6 (Version None)
Quarter: 2008Q3

REPORT INFORMATION
  Report Type: 
  Country: None (occurrence: None)
  Receive Date: 20080919
  Receipt Date: 20080620
  Transmission Date: 20090109
  Serious: No
  Sender: FDA-Public Use
  Company Number: US-WYE-H04686708

PATIENT
  Age: 47 Year
  Sex: Female
  Weight: 104.42 kg

DRUGS (3)
  1. PRISTIQ [Suspect]
     Indication: DEPRESSION
     Dosage: 50 MG 1X PER 1 DAY, ORAL
     Route: 048
     Dates: start: 20080617
  2. HERBAL PREPARATION (HERBAL PREPARATION) [Concomitant]
  3. UNISOM [Concomitant]

REACTIONS (4)
  - DYSKINESIA [None]
  - HALLUCINATION [None]
  - SPEECH DISORDER [None]
  - TREMOR [None]
